FAERS Safety Report 10979768 (Version 1)
Quarter: 2015Q2

REPORT INFORMATION
  Report Type: Spontaneous
  Country: US (occurrence: US)
  Receive Date: 20150402
  Receipt Date: 20150402
  Transmission Date: 20150821
  Serious: No
  Sender: FDA-Public Use
  Company Number: US-SA-2015SA016838

PATIENT
  Age: 33 Year
  Sex: Male
  Weight: 48 kg

DRUGS (1)
  1. ALLEGRA [Suspect]
     Active Substance: FEXOFENADINE HYDROCHLORIDE
     Indication: THROAT IRRITATION
     Dosage: LOWEST DOSE  A FEW DAYS AGO
     Route: 048

REACTIONS (6)
  - Gastrointestinal disorder [Unknown]
  - Diarrhoea [Unknown]
  - Abdominal pain upper [Unknown]
  - Headache [Unknown]
  - Flatulence [Unknown]
  - Fatigue [Unknown]
